FAERS Safety Report 8591318-X (Version None)
Quarter: 2012Q3

REPORT INFORMATION
  Report Type: 
  Country: None (occurrence: None)
  Receive Date: 20120731
  Receipt Date: 20120716
  Transmission Date: 20120928
  Serious: Yes (Hospitalization)
  Sender: FDA-Public Use
  Company Number: IMP_05938_2012

PATIENT
  Age: 57 Year
  Sex: Male

DRUGS (6)
  1. MYCOPHENOLATE MOFETIL [Suspect]
     Dosage: (500 MG TID), (DF)
  2. EZETIMIBE [Concomitant]
  3. SIMVASTATIN [Concomitant]
  4. FENOFIBRATE [Suspect]
     Indication: BLOOD TRIGLYCERIDES INCREASED
     Dosage: (200 MG QD)
  5. MEPREDNISONE [Concomitant]
  6. LOSARTAN POTASSIUM [Concomitant]

REACTIONS (7)
  - BLOOD UREA INCREASED [None]
  - WHITE BLOOD CELL COUNT DECREASED [None]
  - HAEMATOCRIT DECREASED [None]
  - FEBRILE NEUTROPENIA [None]
  - DRUG INTERACTION [None]
  - BLOOD CREATININE INCREASED [None]
  - BONE MARROW FAILURE [None]
